FAERS Safety Report 7734171-6 (Version None)
Quarter: 2011Q3

REPORT INFORMATION
  Report Type: 
  Country: None (occurrence: None)
  Receive Date: 20110901
  Receipt Date: 20110822
  Transmission Date: 20111222
  Serious: Yes (Death)
  Sender: FDA-Public Use
  Company Number: 2011US0240

PATIENT
  Age: 5 Year
  Sex: Male

DRUGS (1)
  1. ORFAIN (NITISINONE) [Suspect]
     Indication: AMINO ACID METABOLISM DISORDER

REACTIONS (1)
  - RESPIRATORY FAILURE [None]
